FAERS Safety Report 18213339 (Version 4)
Quarter: 2020Q3

REPORT INFORMATION
  Report Type: Spontaneous
  Country: JP (occurrence: JP)
  Receive Date: 20200831
  Receipt Date: 20200929
  Transmission Date: 20201103
  Serious: Yes (Death, Hospitalization, Other)
  Sender: FDA-Public Use
  Company Number: JP-AMGEN-JPNSP2020140071

PATIENT
  Age: 82 Year
  Sex: Male
  Weight: 59.4 kg

DRUGS (12)
  1. PARSABIV [Suspect]
     Active Substance: ETELCALCETIDE HYDROCHLORIDE
     Dosage: 2.5 MILLIGRAM, Q56H
     Route: 010
     Dates: start: 20191026, end: 20200421
  2. EPOGIN [Concomitant]
     Active Substance: ERYTHROPOIETIN
     Indication: NEPHROGENIC ANAEMIA
     Dosage: 1500 IU, Q84H
     Route: 042
     Dates: end: 20200423
  3. TAKEPRON [Concomitant]
     Active Substance: LANSOPRAZOLE
     Dosage: 15 MG, EVERYDAY
     Route: 048
  4. FESIN [SACCHARATED IRON OXIDE] [Concomitant]
     Active Substance: IRON SUCROSE
     Dosage: 40 MG, QW
     Route: 042
     Dates: start: 20191214, end: 20200215
  5. DROXIDOPA [Concomitant]
     Active Substance: DROXIDOPA
     Indication: DIALYSIS HYPOTENSION
     Dosage: 100 MG, AT 2 HOURS OF HD
     Route: 048
  6. PARSABIV [Suspect]
     Active Substance: ETELCALCETIDE HYDROCHLORIDE
     Indication: HYPERPARATHYROIDISM SECONDARY
     Dosage: 5 MILLIGRAM, Q56H
     Route: 010
     Dates: start: 20190119, end: 20191024
  7. SHAKUYAKUKANZOTO [Concomitant]
     Active Substance: HERBALS
     Dosage: 2.5 G, DURING HD
     Route: 048
  8. ALFAROL [Suspect]
     Active Substance: ALFACALCIDOL
     Dosage: 0.5 UG, EVERYDAY
     Route: 048
     Dates: start: 20191026
  9. EPOGIN [Concomitant]
     Active Substance: ERYTHROPOIETIN
     Dosage: 4500 IU, QW
     Route: 042
     Dates: start: 20200425
  10. ALFAROL [Suspect]
     Active Substance: ALFACALCIDOL
     Indication: HYPERPARATHYROIDISM SECONDARY
     Dosage: 0.5 UG, EVERYDAY
     Route: 048
     Dates: end: 20190913
  11. ALFAROL [Suspect]
     Active Substance: ALFACALCIDOL
     Dosage: 0.25 UG, EVERYDAY
     Route: 048
     Dates: start: 20190914, end: 20191025
  12. FOSRENOL [Concomitant]
     Active Substance: LANTHANUM CARBONATE
     Dosage: 250 MG, Q8H
     Route: 048

REACTIONS (2)
  - Hypocalcaemia [Recovered/Resolved]
  - Idiopathic interstitial pneumonia [Fatal]

NARRATIVE: CASE EVENT DATE: 20191022
